FAERS Safety Report 20696154 (Version 2)
Quarter: 2022Q2

REPORT INFORMATION
  Report Type: Spontaneous
  Country: CA (occurrence: CA)
  Receive Date: 20220411
  Receipt Date: 20220531
  Transmission Date: 20220721
  Serious: Yes (Other)
  Sender: FDA-Public Use
  Company Number: CA-PFIZER INC-202200505812

PATIENT
  Age: 63 Year
  Sex: Female
  Weight: 66 kg

DRUGS (3)
  1. ADALIMUMAB [Suspect]
     Active Substance: ADALIMUMAB
     Dosage: 40 MG, WEEKLY
     Route: 058
  2. ADALIMUMAB [Suspect]
     Active Substance: ADALIMUMAB
     Dosage: 40 MG, 2X/WEEK
     Route: 058
  3. PREDNISONE [Concomitant]
     Active Substance: PREDNISONE
     Dosage: 40 MG, WEEKLY
     Route: 058

REACTIONS (2)
  - Left ventricular dysfunction [Not Recovered/Not Resolved]
  - Off label use [Unknown]

NARRATIVE: CASE EVENT DATE: 20220315
